FAERS Safety Report 6715677-5 (Version None)
Quarter: 2010Q2

REPORT INFORMATION
  Report Type: 
  Country: None (occurrence: None)
  Receive Date: 20100507
  Receipt Date: 20091208
  Transmission Date: 20101027
  Serious: No
  Sender: FDA-Public Use
  Company Number: A0813408A

PATIENT
  Age: 75 Year
  Sex: Female

DRUGS (9)
  1. INFLUENZA VACCINE [Suspect]
     Indication: PROPHYLAXIS
     Route: 065
     Dates: start: 20080101, end: 20080101
  2. INFLUENZA VACCINE [Suspect]
     Route: 065
     Dates: start: 20090901, end: 20090901
  3. DYNACIRC CR [Suspect]
     Indication: HYPERTENSION
     Dosage: 5MG PER DAY
     Route: 048
     Dates: start: 20091017
  4. ISRADIPINE [Suspect]
     Indication: HYPERTENSION
     Dosage: 5MG PER DAY
     Route: 048
     Dates: start: 20090301, end: 20091001
  5. DIAVAN [Concomitant]
  6. ATENOLOL [Concomitant]
  7. LIPITOR [Concomitant]
  8. ASPIRIN [Concomitant]
  9. CO Q 10 [Concomitant]

REACTIONS (12)
  - ANXIETY [None]
  - CHILLS [None]
  - DRUG INEFFECTIVE [None]
  - ERYTHEMA [None]
  - FEELING ABNORMAL [None]
  - HEADACHE [None]
  - NERVOUSNESS [None]
  - PALPITATIONS [None]
  - PSYCHOMOTOR HYPERACTIVITY [None]
  - PYREXIA [None]
  - STRESS [None]
  - TENSION [None]
